FAERS Safety Report 4809073-5 (Version None)
Quarter: 2005Q4

REPORT INFORMATION
  Report Type: 
  Country: None (occurrence: None)
  Receive Date: 20051021
  Receipt Date: 20041108
  Transmission Date: 20060501
  Serious: No
  Sender: FDA-Public Use
  Company Number: EWC041141407

PATIENT
  Age: 14 Year
  Sex: Female

DRUGS (1)
  1. OLANZAPINE [Suspect]
     Indication: BIPOLAR I DISORDER
     Dosage: 10 MG DAY
     Dates: start: 20040805, end: 20040927

REACTIONS (1)
  - GRANULOCYTOPENIA [None]
